FAERS Safety Report 16614829 (Version 5)
Quarter: 2020Q2

REPORT INFORMATION
  Report Type: Report from Study
  Country: US (occurrence: US)
  Receive Date: 20190723
  Receipt Date: 20200416
  Transmission Date: 20200713
  Serious: Yes (Congenital Anomaly, Other)
  Sender: FDA-Public Use
  Company Number: US-GILEAD-2019-0419409

PATIENT
  Sex: Female
  Weight: 3.49 kg

DRUGS (3)
  1. PREZISTA [Suspect]
     Active Substance: DARUNAVIR ETHANOLATE
     Indication: HIV INFECTION
     Dosage: 1 DOSAGE FORM, QD
     Route: 064
     Dates: start: 20190201
  2. NORVIR [Suspect]
     Active Substance: RITONAVIR
     Indication: HIV INFECTION
     Dosage: 1 DOSAGE FORM, QD
     Route: 064
     Dates: start: 20190201
  3. EMTRICITABINE;TENOFOVIR DISOPROXIL FUMARATE [Suspect]
     Active Substance: EMTRICITABINE\TENOFOVIR DISOPROXIL FUMARATE
     Indication: HIV INFECTION
     Dosage: 1 DOSAGE FORM, QD
     Route: 064
     Dates: start: 20190201

REACTIONS (2)
  - Foetal exposure during pregnancy [Recovered/Resolved]
  - Ventricular septal defect [Unknown]

NARRATIVE: CASE EVENT DATE: 20190201
